FAERS Safety Report 17939161 (Version 1)
Quarter: 2020Q2

REPORT INFORMATION
  Report Type: Spontaneous
  Country: GB (occurrence: GB)
  Receive Date: 20200624
  Receipt Date: 20200624
  Transmission Date: 20200714
  Serious: Yes (Other)
  Sender: FDA-Public Use
  Company Number: GB-TEVA-2020-GB-1790678

PATIENT
  Age: 28 Year
  Sex: Female
  Weight: 74 kg

DRUGS (4)
  1. CLARITHROMYCIN. [Suspect]
     Active Substance: CLARITHROMYCIN
     Dosage: 500 MG
     Route: 048
     Dates: start: 20200527
  2. FOSTAIR [Concomitant]
     Active Substance: BECLOMETHASONE\FORMOTEROL
     Dosage: PUFFS 4 DOSAGE FORMS
     Dates: start: 20191231
  3. SALBUTAMOL [Concomitant]
     Active Substance: ALBUTEROL
     Dosage: INHALE 2 DOSAGE FORMS
     Route: 055
     Dates: start: 20170909
  4. MICROGYNON [Concomitant]
     Active Substance: ETHINYL ESTRADIOL\LEVONORGESTREL ACETATE
     Dosage: AS DIRECTED 1 DOSAGE FORMS
     Dates: start: 20200320

REACTIONS (4)
  - Tachycardia [Recovered/Resolved]
  - Back pain [Unknown]
  - Dysgeusia [Unknown]
  - Somnolence [Unknown]

NARRATIVE: CASE EVENT DATE: 20200602
